FAERS Safety Report 6457926-7 (Version None)
Quarter: 2009Q4

REPORT INFORMATION
  Report Type: 
  Country: None (occurrence: None)
  Receive Date: 20091125
  Receipt Date: 20091113
  Transmission Date: 20100525
  Serious: Yes (Other)
  Sender: FDA-Public Use
  Company Number: US-GENENTECH-250453

PATIENT
  Sex: Male

DRUGS (9)
  1. OMALIZUMAB [Suspect]
     Indication: ASTHMA
     Dosage: 300 MG, Q4W
     Route: 064
     Dates: start: 20070119
  2. OMALIZUMAB [Suspect]
     Route: 064
     Dates: start: 20051115
  3. VITAMIN TAB [Concomitant]
     Indication: PREGNANCY
     Route: 064
  4. ADVAIR DISKUS 100/50 [Concomitant]
     Indication: ASTHMA
     Route: 064
  5. ZYRTEC [Concomitant]
     Indication: HYPERSENSITIVITY
     Dosage: UNK, UNK
     Route: 064
  6. ALBUTEROL [Concomitant]
     Indication: ASTHMA
     Route: 064
  7. ALLERGY INJECTION UNKNOWN ALLERGENS [Concomitant]
     Indication: HYPERSENSITIVITY
     Route: 064
  8. NASONEX [Concomitant]
     Indication: HYPERSENSITIVITY
     Route: 064
  9. PATANOL [Concomitant]
     Indication: HYPERSENSITIVITY
     Route: 064

REACTIONS (2)
  - DRUG EXPOSURE DURING PREGNANCY [None]
  - JAUNDICE NEONATAL [None]
